FAERS Safety Report 14980054 (Version 1)
Quarter: 2018Q2

REPORT INFORMATION
  Report Type: Spontaneous
  Country: DE (occurrence: DE)
  Receive Date: 20180606
  Receipt Date: 20180606
  Transmission Date: 20180711
  Serious: Yes (Hospitalization)
  Sender: FDA-Public Use
  Company Number: DE-TEVA-2018-DE-902849

PATIENT
  Age: 78 Year
  Sex: Female
  Weight: 68 kg

DRUGS (12)
  1. CLONIDIN [Concomitant]
     Active Substance: CLONIDINE
     Dosage: RETARD CAPSULES
     Route: 048
  2. LERCANIDIPIN [Concomitant]
     Active Substance: LERCANIDIPINE
     Route: 048
  3. LEVOTHYROXIN-NATRIUM [Concomitant]
     Route: 048
  4. CLOPIDOGREL [Suspect]
     Active Substance: CLOPIDOGREL BISULFATE
     Route: 048
  5. PHENPROCOUMON [Suspect]
     Active Substance: PHENPROCOUMON
     Route: 048
  6. PANTOPRAZOL [Concomitant]
     Active Substance: PANTOPRAZOLE SODIUM
     Route: 048
  7. TILIDIN/NALOXON [Concomitant]
     Active Substance: NALOXONE HYDROCHLORIDE\TILIDINE HYDROCHLORIDE
     Dosage: 50|4 MG, 0-0-1-0, RETARD-TABLETTEN
     Route: 048
  8. ACETYLSALICYLS?URE [Suspect]
     Active Substance: ASPIRIN
     Route: 048
  9. TORASEMID [Concomitant]
     Active Substance: TORSEMIDE
     Route: 048
  10. NEBIVOLOL. [Concomitant]
     Active Substance: NEBIVOLOL
     Route: 048
  11. RAMIPRIL. [Concomitant]
     Active Substance: RAMIPRIL
     Route: 048
  12. ATORVASTATIN [Concomitant]
     Active Substance: ATORVASTATIN
     Route: 048

REACTIONS (8)
  - Pallor [Unknown]
  - Haemoglobin decreased [Unknown]
  - Angina pectoris [Unknown]
  - Epistaxis [Unknown]
  - Blood creatinine increased [None]
  - Anaemia [Unknown]
  - Prothrombin time prolonged [None]
  - General physical health deterioration [Unknown]
